FAERS Safety Report 9209637 (Version 2)
Quarter: 2013Q2

REPORT INFORMATION
  Report Type: Report from Study
  Country: US (occurrence: US)
  Receive Date: 20130404
  Receipt Date: 20130429
  Transmission Date: 20140414
  Serious: No
  Sender: FDA-Public Use
  Company Number: US-VERTEX PHARMACEUTICALS INC.-2013-004418

PATIENT
  Sex: Female

DRUGS (5)
  1. VX-950 (TELAPREVIR) [Suspect]
     Indication: HEPATITIS C
     Dosage: 750 MG, TID
     Route: 048
     Dates: start: 20130118, end: 20130418
  2. RIBAVIRIN [Suspect]
     Indication: HEPATITIS C
     Dosage: 600 MG, BID
     Dates: start: 20130118
  3. PEGASYS [Suspect]
     Indication: HEPATITIS C
     Dosage: 180 ?G, QW
     Route: 058
     Dates: start: 20130118
  4. ZOLOFT [Concomitant]
     Dosage: 50 MG, QD
     Route: 048
     Dates: start: 20130402
  5. IBUPROFEN [Concomitant]
     Dosage: 2 DF, PRN
     Route: 048

REACTIONS (5)
  - Decreased appetite [Not Recovered/Not Resolved]
  - Mood swings [Not Recovered/Not Resolved]
  - Rash [Recovered/Resolved]
  - Haemoglobin decreased [Not Recovered/Not Resolved]
  - Nausea [Recovered/Resolved]
